FAERS Safety Report 7572240-4 (Version None)
Quarter: 2011Q2

REPORT INFORMATION
  Report Type: 
  Country: None (occurrence: None)
  Receive Date: 20110624
  Receipt Date: 20110613
  Transmission Date: 20111010
  Serious: Yes (Other)
  Sender: FDA-Public Use
  Company Number: PHHY2011JP30284

PATIENT
  Sex: Female

DRUGS (5)
  1. EXJADE [Suspect]
     Dosage: 500 MG DAILY
     Route: 048
     Dates: start: 20100708, end: 20101018
  2. METHYLTESTOSTERONE [Concomitant]
     Indication: MYELODYSPLASTIC SYNDROME
     Dosage: 25 MG, UNK
     Route: 048
     Dates: start: 20050601
  3. EXJADE [Suspect]
     Dosage: 100 MG, DAILY
     Route: 048
     Dates: start: 20101119, end: 20110316
  4. GLAKAY [Concomitant]
     Indication: MYELODYSPLASTIC SYNDROME
     Dosage: 45 MG, UNK
     Route: 048
  5. EXJADE [Suspect]
     Indication: MYELODYSPLASTIC SYNDROME
     Dosage: 125 MG DAILY
     Route: 048
     Dates: start: 20091210, end: 20100707

REACTIONS (4)
  - NEOPLASM PROGRESSION [None]
  - DRUG INEFFECTIVE [None]
  - PANCYTOPENIA [None]
  - NEOPLASM MALIGNANT [None]
